FAERS Safety Report 17916307 (Version 1)
Quarter: 2020Q2

REPORT INFORMATION
  Report Type: Spontaneous
  Country: US (occurrence: US)
  Receive Date: 20200619
  Receipt Date: 20200619
  Transmission Date: 20200714
  Serious: Yes (Other)
  Sender: FDA-Public Use
  Company Number: None

PATIENT
  Age: 64 Year
  Sex: Male
  Weight: 98.1 kg

DRUGS (12)
  1. ENDOCET [Suspect]
     Active Substance: ACETAMINOPHEN\OXYCODONE HYDROCHLORIDE
     Indication: OSTEOARTHRITIS
     Dosage: ?          QUANTITY:180 TABLET(S);?
     Route: 048
     Dates: start: 20200618, end: 20200618
  2. CELEBREX [Concomitant]
     Active Substance: CELECOXIB
  3. RANITIDINE. [Concomitant]
     Active Substance: RANITIDINE
  4. LEVOTHYROXINE. [Concomitant]
     Active Substance: LEVOTHYROXINE
  5. MAGNESIUM 400 MG [Concomitant]
  6. VITAMIN D [Concomitant]
     Active Substance: VITAMIN D NOS
  7. ENDOCET [Concomitant]
     Active Substance: ACETAMINOPHEN\OXYCODONE HYDROCHLORIDE
  8. VALIUM 10 MG [Concomitant]
  9. OXYCODONE/ACETAMINOPHEN 10-325MG [Suspect]
     Active Substance: ACETAMINOPHEN\OXYCODONE HYDROCHLORIDE
  10. RX CREAM COMPOUJND LIDOCAINE/ PRILOCAINE [Concomitant]
  11. DOCUSATE CALCIUM. [Concomitant]
     Active Substance: DOCUSATE CALCIUM
  12. MAALOX SIMETHICONE [Concomitant]

REACTIONS (12)
  - Hyperhidrosis [None]
  - Pancreatic disorder [None]
  - Nervousness [None]
  - Peripheral coldness [None]
  - Wrong technique in product usage process [None]
  - Product tampering [None]
  - Paraesthesia [None]
  - Malaise [None]
  - Product substitution issue [None]
  - Dizziness [None]
  - Dyspnoea [None]
  - Gallbladder disorder [None]

NARRATIVE: CASE EVENT DATE: 20200618
